FAERS Safety Report 16784951 (Version 1)
Quarter: 2019Q3

REPORT INFORMATION
  Report Type: Spontaneous
  Country: SE (occurrence: SE)
  Receive Date: 20190909
  Receipt Date: 20190909
  Transmission Date: 20191005
  Serious: Yes (Hospitalization)
  Sender: FDA-Public Use
  Company Number: SE-TEVA-2019-SE-1103412

PATIENT
  Sex: Female

DRUGS (4)
  1. QUETIAPINE. [Suspect]
     Active Substance: QUETIAPINE
     Route: 048
     Dates: start: 20190220, end: 20190220
  2. PROPAVAN [Suspect]
     Active Substance: PROPIOMAZINE
     Dosage: 2 ST
     Route: 048
     Dates: start: 20190220, end: 20190220
  3. LERGIGAN (PROMETHAZINE HYDROCHLORIDE) [Suspect]
     Active Substance: PROMETHAZINE HYDROCHLORIDE
     Dosage: TOTAL 8 X 25 MG,  SPREAD OUT
     Route: 048
     Dates: start: 20190220, end: 20190220
  4. ZOLPIDEM [Suspect]
     Active Substance: ZOLPIDEM TARTRATE
     Dosage: 1-2 X 5 MG
     Route: 048
     Dates: start: 20190220, end: 20190220

REACTIONS (2)
  - Intentional self-injury [Unknown]
  - Intentional overdose [Unknown]

NARRATIVE: CASE EVENT DATE: 20190220
